FAERS Safety Report 18880853 (Version 1)
Quarter: 2021Q1

REPORT INFORMATION
  Report Type: Report from Study
  Country: None (occurrence: US)
  Receive Date: 20210212
  Receipt Date: 20210212
  Transmission Date: 20210420
  Serious: Yes (Other)
  Sender: FDA-Public Use
  Company Number: US-ABBVIE-21K-163-3765078-00

PATIENT
  Sex: Female

DRUGS (1)
  1. HUMIRA [Suspect]
     Active Substance: ADALIMUMAB
     Indication: CROHN^S DISEASE
     Route: 058

REACTIONS (5)
  - Rotator cuff syndrome [Recovering/Resolving]
  - Osteoarthritis [Recovering/Resolving]
  - Haemochromatosis [Unknown]
  - Seizure [Recovering/Resolving]
  - Dizziness [Recovering/Resolving]
